FAERS Safety Report 8495223-9 (Version None)
Quarter: 2012Q3

REPORT INFORMATION
  Report Type: 
  Country: None (occurrence: None)
  Receive Date: 20120702
  Receipt Date: 20120702
  Transmission Date: 20120928
  Serious: Yes (Other)
  Sender: FDA-Public Use
  Company Number: None

PATIENT
  Sex: Female

DRUGS (2)
  1. MUCINEX [Concomitant]
  2. SULFAMETHOXAZOLE [Suspect]
     Indication: SINUSITIS
     Dosage: 800 MG TWICE A DAY PO  ONE TIME
     Route: 048
     Dates: start: 20120628

REACTIONS (6)
  - FLUSHING [None]
  - FEELING HOT [None]
  - PAIN [None]
  - OCULAR HYPERAEMIA [None]
  - EYE PRURITUS [None]
  - ARTHRALGIA [None]
